FAERS Safety Report 12327186 (Version 8)
Quarter: 2017Q1

REPORT INFORMATION
  Report Type: Spontaneous
  Country: US (occurrence: US)
  Receive Date: 20160503
  Receipt Date: 20170329
  Transmission Date: 20170428
  Serious: Yes (Other)
  Sender: FDA-Public Use
  Company Number: PHEH2016US010580

PATIENT
  Age: 62 Year
  Sex: Female

DRUGS (1)
  1. RECLAST [Suspect]
     Active Substance: ZOLEDRONIC ACID
     Indication: OSTEOPOROSIS
     Route: 065

REACTIONS (92)
  - Deep vein thrombosis [Unknown]
  - Respiratory failure [Unknown]
  - Type 2 diabetes mellitus [Unknown]
  - Fibromyalgia [Unknown]
  - Goitre [Unknown]
  - Intermittent claudication [Unknown]
  - Visual acuity reduced [Unknown]
  - Limb injury [Unknown]
  - Bursitis [Unknown]
  - Plantar fasciitis [Unknown]
  - Pain in extremity [Unknown]
  - Joint swelling [Unknown]
  - Abscess [Unknown]
  - Upper-airway cough syndrome [Unknown]
  - Sinus bradycardia [Unknown]
  - Depression [Unknown]
  - Weight decreased [Unknown]
  - Middle ear effusion [Unknown]
  - Cough [Unknown]
  - Myalgia [Unknown]
  - Blood pressure decreased [Unknown]
  - Sarcoidosis [Unknown]
  - Deformity [Unknown]
  - Osteomyelitis [Unknown]
  - Jaw disorder [Unknown]
  - Alopecia [Unknown]
  - Diplopia [Unknown]
  - Chronic obstructive pulmonary disease [Unknown]
  - Affective disorder [Unknown]
  - Dysphagia [Unknown]
  - Faeces discoloured [Unknown]
  - Rotator cuff syndrome [Unknown]
  - Musculoskeletal pain [Unknown]
  - Pyrexia [Unknown]
  - Haemoglobin decreased [Unknown]
  - Fatigue [Unknown]
  - Headache [Unknown]
  - Decreased appetite [Unknown]
  - Cellulitis [Unknown]
  - Bipolar disorder [Unknown]
  - Hypokalaemia [Unknown]
  - Klebsiella infection [Unknown]
  - Neoplasm [Unknown]
  - Osteonecrosis of jaw [Unknown]
  - Suicide attempt [Unknown]
  - Fall [Unknown]
  - Gastrooesophageal reflux disease [Unknown]
  - Flank pain [Unknown]
  - Asthenia [Unknown]
  - Nephrolithiasis [Unknown]
  - Otitis media [Unknown]
  - Lymphadenopathy [Unknown]
  - Arterial occlusive disease [Unknown]
  - Migraine [Unknown]
  - Colitis microscopic [Unknown]
  - Dermatitis atopic [Unknown]
  - Mouth swelling [Unknown]
  - Amnesia [Unknown]
  - Bulimia nervosa [Unknown]
  - Osteoarthritis [Unknown]
  - Arthralgia [Unknown]
  - Abdominal pain upper [Unknown]
  - Nausea [Unknown]
  - Oral pain [Unknown]
  - Hypoaesthesia [Unknown]
  - Arrhythmia [Unknown]
  - Rhinorrhoea [Unknown]
  - Hypothyroidism [Unknown]
  - Stress urinary incontinence [Unknown]
  - Hyperlipidaemia [Unknown]
  - Ventricular extrasystoles [Unknown]
  - Tenosynovitis stenosans [Recovered/Resolved]
  - Anxiety [Unknown]
  - Insomnia [Unknown]
  - Chills [Unknown]
  - Influenza like illness [Unknown]
  - Dizziness [Unknown]
  - Hypertension [Unknown]
  - Upper gastrointestinal haemorrhage [Unknown]
  - Neuropathy peripheral [Unknown]
  - Major depression [Unknown]
  - Injury [Unknown]
  - Oropharyngeal pain [Unknown]
  - Lipoma [Unknown]
  - Oral mucosal blistering [Unknown]
  - Single functional kidney [Unknown]
  - Snoring [Unknown]
  - Bronchitis [Unknown]
  - Upper respiratory tract infection [Unknown]
  - Ear pain [Unknown]
  - Atelectasis [Unknown]
  - Diarrhoea [Unknown]

NARRATIVE: CASE EVENT DATE: 20131111
